FAERS Safety Report 13295013 (Version 2)
Quarter: 2017Q1

REPORT INFORMATION
  Report Type: Spontaneous
  Country: ES (occurrence: ES)
  Receive Date: 20170303
  Receipt Date: 20170329
  Transmission Date: 20170428
  Serious: Yes (Life-Threatening, Hospitalization, Other)
  Sender: FDA-Public Use
  Company Number: ES-PFIZER INC-2017089659

PATIENT
  Age: 61 Year
  Sex: Male
  Weight: 84 kg

DRUGS (2)
  1. FUROSEMIDA CINFA [Suspect]
     Active Substance: FUROSEMIDE
     Dosage: 40 MG, 2X/DAY (EVERY 12 HOURS)
     Route: 048
     Dates: start: 20160504
  2. ALDACTONE [Suspect]
     Active Substance: SPIRONOLACTONE
     Dosage: 300 MG, 2X/DAY (EVERY 12 HOURS
     Route: 048
     Dates: start: 20160401

REACTIONS (2)
  - Oedema peripheral [Recovered/Resolved]
  - Acute kidney injury [Recovered/Resolved]

NARRATIVE: CASE EVENT DATE: 20160509
